FAERS Safety Report 14426534 (Version 1)
Quarter: 2018Q1

REPORT INFORMATION
  Report Type: Report from Study
  Country: FR (occurrence: FR)
  Receive Date: 20180123
  Receipt Date: 20180123
  Transmission Date: 20180509
  Serious: Yes (Hospitalization, Other)
  Sender: FDA-Public Use
  Company Number: FR-TEVA-2018-FR-848639

PATIENT
  Age: 65 Year
  Sex: Male
  Weight: 67 kg

DRUGS (20)
  1. CISPLATIN. [Suspect]
     Active Substance: CISPLATIN
     Indication: NON-SMALL CELL LUNG CANCER
     Dates: start: 20131218
  2. PEMETREXED. [Suspect]
     Active Substance: PEMETREXED
     Dates: start: 20140505
  3. PEMETREXED. [Suspect]
     Active Substance: PEMETREXED
     Dates: start: 20140113
  4. CISPLATIN. [Suspect]
     Active Substance: CISPLATIN
     Dates: start: 20140203
  5. PEMETREXED. [Suspect]
     Active Substance: PEMETREXED
     Dates: start: 20140225
  6. CISPLATIN. [Suspect]
     Active Substance: CISPLATIN
     Dosage: DOSE: 140 MG
     Dates: start: 20131127
  7. PEMETREXED. [Suspect]
     Active Substance: PEMETREXED
     Dates: start: 20140616
  8. PEMETREXED. [Suspect]
     Active Substance: PEMETREXED
     Dates: start: 20141229
  9. PEMETREXED. [Suspect]
     Active Substance: PEMETREXED
     Dates: start: 20140203
  10. PEMETREXED. [Suspect]
     Active Substance: PEMETREXED
     Dates: start: 20150119
  11. PEMETREXED. [Suspect]
     Active Substance: PEMETREXED
     Dates: start: 20140526
  12. CISPLATIN. [Suspect]
     Active Substance: CISPLATIN
     Dates: start: 20140113
  13. PEMETREXED. [Suspect]
     Active Substance: PEMETREXED
     Dates: start: 20140317
  14. PEMETREXED. [Suspect]
     Active Substance: PEMETREXED
     Dosage: PEMETREXED 935
     Dates: start: 20131127
  15. AVASTIN [Suspect]
     Active Substance: BEVACIZUMAB
     Dosage: REINTRODUCED
  16. PEMETREXED. [Suspect]
     Active Substance: PEMETREXED
     Dates: start: 20131218
  17. PEMETREXED. [Suspect]
     Active Substance: PEMETREXED
     Dates: start: 20140407
  18. AVASTIN [Suspect]
     Active Substance: BEVACIZUMAB
     Indication: NON-SMALL CELL LUNG CANCER
     Dates: start: 20131127, end: 20140113
  19. PEMETREXED. [Suspect]
     Active Substance: PEMETREXED
     Indication: NON-SMALL CELL LUNG CANCER
     Dates: start: 20141208
  20. PEMETREXED. [Suspect]
     Active Substance: PEMETREXED
     Dates: start: 20140711

REACTIONS (11)
  - Pancytopenia [Recovered/Resolved]
  - Hypokalaemia [Unknown]
  - Bone marrow failure [Recovered/Resolved]
  - Haematemesis [Unknown]
  - Anaemia [Recovered/Resolved]
  - Vomiting [Unknown]
  - Thrombocytopenia [Recovered/Resolved]
  - Neutropenia [Recovered/Resolved]
  - Epistaxis [Unknown]
  - Neuropathy peripheral [Not Recovered/Not Resolved]
  - Diarrhoea [Recovered/Resolved]

NARRATIVE: CASE EVENT DATE: 20131224
